FAERS Safety Report 10738587 (Version 1)
Quarter: 2015Q1

REPORT INFORMATION
  Report Type: Spontaneous
  Country: DE (occurrence: DE)
  Receive Date: 20150126
  Receipt Date: 20150126
  Transmission Date: 20150721
  Serious: Yes (Other)
  Sender: FDA-Public Use
  Company Number: DE-TEVA-536258GER

PATIENT
  Age: 16 Year
  Sex: Male

DRUGS (3)
  1. LEVETIRACETAM. [Suspect]
     Active Substance: LEVETIRACETAM
     Indication: SEIZURE
     Dosage: 30 MG/KG/DAY
     Route: 065
  2. ETOPOSIDE. [Suspect]
     Active Substance: ETOPOSIDE
     Dosage: 1800 MG/M2/D; 4 DAYS PREVIOUSLY
     Route: 065
  3. ANTITHYMOCYTE IMMUNOGLOBULIN [Suspect]
     Active Substance: THYMOCYTE IMMUNE GLOBULIN NOS
     Dosage: 20 MG/KG/D;3 DAYS PREVIOUSLY TO 1 DAY PREVIOUSLY
     Route: 065

REACTIONS (7)
  - Pyrexia [Unknown]
  - Pneumonia [Unknown]
  - Neutropenia [Unknown]
  - Mucosal inflammation [Unknown]
  - Transplant failure [Recovering/Resolving]
  - Klebsiella sepsis [Unknown]
  - Myelodysplastic syndrome [Unknown]
